FAERS Safety Report 8897804 (Version 2)
Quarter: 2012Q4

REPORT INFORMATION
  Report Type: 
  Country: US (occurrence: US)
  Receive Date: 20121109
  Receipt Date: 20121211
  Transmission Date: 20130627
  Serious: Yes (Hospitalization)
  Sender: FDA-Public Use
  Company Number: US-ELI_LILLY_AND_COMPANY-US201211001051

PATIENT
  Sex: Male
  Weight: 66 kg

DRUGS (4)
  1. ADCIRCA [Suspect]
  2. REMODULIN                               /USA/ [Concomitant]
     Indication: PULMONARY HYPERTENSION
     Dosage: UNK
     Route: 058
     Dates: start: 20111206
  3. DIURETICS [Concomitant]
  4. OXYGEN [Concomitant]

REACTIONS (1)
  - Injection site infection [Recovered/Resolved]
